FAERS Safety Report 4563644-2 (Version None)
Quarter: 2005Q1

REPORT INFORMATION
  Report Type: 
  Country: None (occurrence: None)
  Receive Date: 20050124
  Receipt Date: 20050111
  Transmission Date: 20050727
  Serious: Yes (Hospitalization)
  Sender: FDA-Public Use
  Company Number: 800246

PATIENT
  Age: 50 Year
  Sex: Female

DRUGS (1)
  1. EXTRANEAL [Suspect]
     Indication: PERITONEAL DIALYSIS
     Dosage: INTRAPERITONEAL
     Route: 033

REACTIONS (4)
  - BLOOD GLUCOSE FALSE POSITIVE [None]
  - HYPOGLYCAEMIC COMA [None]
  - LABORATORY TEST INTERFERENCE [None]
  - MEDICAL DEVICE COMPLICATION [None]
